FAERS Safety Report 9954766 (Version 1)
Quarter: 2014Q1

REPORT INFORMATION
  Report Type: Report from Study
  Country: US (occurrence: US)
  Receive Date: 20140304
  Receipt Date: 20140304
  Transmission Date: 20141002
  Serious: No
  Sender: FDA-Public Use
  Company Number: US-ABBVIE-13P-163-1083313-00

PATIENT
  Age: 58 Year
  Sex: Female

DRUGS (8)
  1. HUMIRA [Suspect]
     Indication: COLITIS ULCERATIVE
     Dosage: LOADING DOSE
     Dates: start: 20130412, end: 20130412
  2. HUMIRA [Suspect]
     Dosage: LOADING DOSE
     Dates: start: 20130426, end: 20130426
  3. PREDNISONE [Suspect]
     Indication: COLITIS ULCERATIVE
     Dosage: WEANED FROM 40 MG
  4. ASACOL [Concomitant]
     Indication: COLITIS ULCERATIVE
  5. AZATHIOPRINE [Concomitant]
     Indication: COLITIS ULCERATIVE
     Dosage: WILL BE WEANED FROM WHEN HUMIRA KICKS IN
  6. FOLIC ACID [Concomitant]
     Indication: VITAMIN SUPPLEMENTATION
  7. PROTONIX [Concomitant]
     Indication: PROPHYLAXIS AGAINST GASTROINTESTINAL ULCER
  8. TRAZODONE [Concomitant]
     Indication: POOR QUALITY SLEEP

REACTIONS (1)
  - Injection site bruising [Recovering/Resolving]
